FAERS Safety Report 13866730 (Version 1)
Quarter: 2017Q3

REPORT INFORMATION
  Report Type: Spontaneous
  Country: GB (occurrence: GB)
  Receive Date: 20170814
  Receipt Date: 20170814
  Transmission Date: 20171127
  Serious: Yes (Hospitalization)
  Sender: FDA-Public Use
  Company Number: GB-PFIZER INC-2017344301

PATIENT
  Age: 41 Year
  Sex: Female
  Weight: 46.26 kg

DRUGS (4)
  1. MEBEVERINE [Concomitant]
     Active Substance: MEBEVERINE
     Indication: IRRITABLE BOWEL SYNDROME
     Dosage: 135 MG, UNK
     Dates: start: 20170622
  2. VITAMIN D3 [Concomitant]
     Active Substance: CHOLECALCIFEROL
     Dosage: 500 UG, UNK
  3. SERTRALINE HCL [Suspect]
     Active Substance: SERTRALINE HYDROCHLORIDE
     Indication: STRESS
     Dosage: 50/150 MG
  4. FOLIC ACID. [Suspect]
     Active Substance: FOLIC ACID
     Indication: IRON DEFICIENCY
     Dosage: 5 MG, UNK
     Dates: start: 20170609

REACTIONS (6)
  - Dizziness [Not Recovered/Not Resolved]
  - Pain in extremity [Not Recovered/Not Resolved]
  - Frequent bowel movements [Unknown]
  - Mental impairment [Not Recovered/Not Resolved]
  - Pollakiuria [Not Recovered/Not Resolved]
  - Arthralgia [Not Recovered/Not Resolved]
